FAERS Safety Report 21589693 (Version 1)
Quarter: 2022Q4

REPORT INFORMATION
  Report Type: Spontaneous
  Country: CA (occurrence: CA)
  Receive Date: 20221114
  Receipt Date: 20221114
  Transmission Date: 20230112
  Serious: Yes (Life-Threatening)
  Sender: FDA-Public Use
  Company Number: None

PATIENT
  Age: 50 Year
  Sex: Female
  Weight: 47.63 kg

DRUGS (1)
  1. QUETIAPINE FUMARATE [Suspect]
     Active Substance: QUETIAPINE FUMARATE
     Indication: Antidepressant therapy
     Dosage: 1 EVERY 1 DAYS
     Route: 048

REACTIONS (6)
  - Gastric pH decreased [Unknown]
  - Homicidal ideation [Unknown]
  - Kidney infection [Unknown]
  - Mental disorder [Unknown]
  - Renal pain [Unknown]
  - Suicidal ideation [Unknown]
